FAERS Safety Report 23022488 (Version 2)
Quarter: 2023Q4

REPORT INFORMATION
  Report Type: Spontaneous
  Country: PL (occurrence: None)
  Receive Date: 20231003
  Receipt Date: 20231118
  Transmission Date: 20240110
  Serious: Yes (Hospitalization, Other)
  Sender: FDA-Public Use
  Company Number: PL-ROCHE-3429899

PATIENT
  Age: 72 Year
  Sex: Female

DRUGS (20)
  1. ATEZOLIZUMAB [Suspect]
     Active Substance: ATEZOLIZUMAB
     Indication: Small cell lung cancer
     Route: 041
     Dates: start: 20220309, end: 20220311
  2. ATEZOLIZUMAB [Suspect]
     Active Substance: ATEZOLIZUMAB
     Route: 041
     Dates: start: 20230330, end: 20230401
  3. ATEZOLIZUMAB [Suspect]
     Active Substance: ATEZOLIZUMAB
     Route: 041
     Dates: start: 20230420, end: 20230422
  4. ATEZOLIZUMAB [Suspect]
     Active Substance: ATEZOLIZUMAB
     Dosage: MOST RECENT DOSE GIVEN ON 19/SEP/2023
     Route: 041
     Dates: start: 20230512, end: 20230514
  5. ETOPOSIDE [Suspect]
     Active Substance: ETOPOSIDE
     Indication: Small cell lung cancer
     Dosage: MOST RECENT DOSE GIVEN ON 19/SEP/2023?ETOPOSIDE 100 MG/M2PC (DAYS 1-3).
     Route: 065
     Dates: start: 20220309, end: 20220311
  6. ETOPOSIDE [Suspect]
     Active Substance: ETOPOSIDE
     Dosage: ETOPOSIDE 100 MG/M2PC (DAYS 1-3).
     Route: 065
     Dates: start: 20230330, end: 20230401
  7. ETOPOSIDE [Suspect]
     Active Substance: ETOPOSIDE
     Dosage: ETOPOSIDE 100 MG/M2PC (DAYS 1-3).
     Route: 065
     Dates: start: 20230420, end: 20230422
  8. ETOPOSIDE [Suspect]
     Active Substance: ETOPOSIDE
     Dosage: ETOPOSIDE 100 MG/M2PC (DAYS 1-3).
     Route: 065
     Dates: start: 20230512, end: 20230514
  9. CARBOPLATIN [Suspect]
     Active Substance: CARBOPLATIN
     Indication: Small cell lung cancer
     Dosage: AUC OF 5 (DAY 1)
     Route: 065
     Dates: start: 20220309, end: 20220311
  10. CARBOPLATIN [Suspect]
     Active Substance: CARBOPLATIN
     Dosage: AUC OF 5 (DAY 1)
     Route: 065
     Dates: start: 20230330, end: 20230401
  11. CARBOPLATIN [Suspect]
     Active Substance: CARBOPLATIN
     Dosage: AUC OF 5 (DAY 1)
     Route: 065
     Dates: start: 20230420, end: 20230422
  12. CARBOPLATIN [Suspect]
     Active Substance: CARBOPLATIN
     Dosage: AUC OF 5 (DAY 1),
     Route: 065
     Dates: start: 20230512, end: 20230514
  13. CLEMASTINE [Concomitant]
     Active Substance: CLEMASTINE
  14. PERFALGAN [Concomitant]
     Active Substance: ACETAMINOPHEN
  15. METFORMIN HYDROCHLORIDE [Concomitant]
     Active Substance: METFORMIN HYDROCHLORIDE
  16. PEGFILGRASTIM [Concomitant]
     Active Substance: PEGFILGRASTIM
  17. OXYGEN [Concomitant]
     Active Substance: OXYGEN
  18. INSULIN NOS [Concomitant]
     Active Substance: INSULIN NOS
  19. LINAGLIPTIN [Concomitant]
     Active Substance: LINAGLIPTIN
  20. HUMAN RED BLOOD CELL [Concomitant]
     Active Substance: HUMAN RED BLOOD CELL

REACTIONS (4)
  - Alopecia [Unknown]
  - Hypersensitivity [Unknown]
  - Type 2 diabetes mellitus [Unknown]
  - Anaemia [Unknown]

NARRATIVE: CASE EVENT DATE: 20220601
